FAERS Safety Report 4746265-8 (Version None)
Quarter: 2005Q3

REPORT INFORMATION
  Report Type: 
  Country: None (occurrence: None)
  Receive Date: 20050816
  Receipt Date: 20050801
  Transmission Date: 20060218
  Serious: Yes (Other)
  Sender: FDA-Public Use
  Company Number: US_0507120137

PATIENT
  Age: 51 Year
  Sex: Male
  Weight: 113 kg

DRUGS (14)
  1. CYMBALTA [Suspect]
     Indication: DIABETIC NEUROPATHY
     Dosage: 60 MG DAY
     Dates: start: 20050328, end: 20050401
  2. ZOCOR [Concomitant]
  3. PRILOSEC [Concomitant]
  4. ROBAXIN [Concomitant]
  5. NASALIDE [Concomitant]
  6. PIROXICAM (PIROXICAM /00500401/) [Concomitant]
  7. SYNTHROID [Concomitant]
  8. METFORMIN HCL [Concomitant]
  9. ELAVIL [Concomitant]
  10. CAPSAICIN [Concomitant]
  11. CLOTRIMAZOLE [Concomitant]
  12. PSYLLIUM [Concomitant]
  13. SULFACETAMIDE SODIUM [Concomitant]
  14. MULTI-VITAMIN [Concomitant]

REACTIONS (11)
  - ASTHENIA [None]
  - CONDITION AGGRAVATED [None]
  - DECREASED APPETITE [None]
  - DEPRESSION [None]
  - HYPERTENSION [None]
  - INSOMNIA [None]
  - NAUSEA [None]
  - NEUROPATHIC PAIN [None]
  - SKIN WRINKLING [None]
  - SOCIAL AVOIDANT BEHAVIOUR [None]
  - TREATMENT NONCOMPLIANCE [None]
